FAERS Safety Report 18947271 (Version 1)
Quarter: 2021Q1

REPORT INFORMATION
  Report Type: Spontaneous
  Country: GB (occurrence: GB)
  Receive Date: 20210226
  Receipt Date: 20210226
  Transmission Date: 20210420
  Serious: Yes (Disabling)
  Sender: FDA-Public Use
  Company Number: GB-VERTEX PHARMACEUTICALS-2021-002921

PATIENT
  Age: 31 Year
  Sex: Female
  Weight: 62 kg

DRUGS (16)
  1. ACICLOVIR [Concomitant]
     Active Substance: ACYCLOVIR
  2. AZITHROMYCIN ANHYDROUS. [Concomitant]
     Active Substance: AZITHROMYCIN ANHYDROUS
  3. FULTIUM?D3 [Concomitant]
     Active Substance: CHOLECALCIFEROL
  4. SALBUTAMOL [Concomitant]
     Active Substance: ALBUTEROL
  5. KAFTRIO [Suspect]
     Active Substance: ELEXACAFTOR\IVACAFTOR\TEZACAFTOR
     Indication: CYSTIC FIBROSIS
     Dosage: 2 TABS(IVA/TEZA/ELEXA)AM
     Route: 048
     Dates: start: 20210129
  6. AZELAIC ACID. [Concomitant]
     Active Substance: AZELAIC ACID
  7. VITAMIN A [Concomitant]
     Active Substance: VITAMIN A
  8. CALCICHEW D3 FORTE [Concomitant]
     Active Substance: CALCIUM\CHOLECALCIFEROL
  9. DORNASE ALFA. [Concomitant]
     Active Substance: DORNASE ALFA
  10. CREON [Concomitant]
     Active Substance: PANCRELIPASE AMYLASE\PANCRELIPASE LIPASE\PANCRELIPASE PROTEASE
  11. FOSTAIR [Concomitant]
     Active Substance: BECLOMETHASONE\FORMOTEROL
  12. KALYDECO [Suspect]
     Active Substance: IVACAFTOR
     Indication: CYSTIC FIBROSIS
     Dosage: 1 TAB(IVA)PM
     Route: 048
     Dates: start: 20210129
  13. CHIESI BRAMITOB [Concomitant]
  14. LAXIDO [Concomitant]
     Active Substance: POLYETHYLENE GLYCOL 3350\POTASSIUM CHLORIDE\SODIUM BICARBONATE\SODIUM CHLORIDE
  15. VITAMIN E [Concomitant]
     Active Substance: .ALPHA.-TOCOPHEROL
  16. VITAMIN D [Concomitant]
     Active Substance: VITAMIN D NOS

REACTIONS (3)
  - Acute sinusitis [Recovered/Resolved]
  - Arthralgia [Recovered/Resolved]
  - Sinus headache [Recovered/Resolved]

NARRATIVE: CASE EVENT DATE: 20210130
